FAERS Safety Report 4599953-0 (Version None)
Quarter: 2005Q1

REPORT INFORMATION
  Report Type: 
  Country: None (occurrence: None)
  Receive Date: 20050303
  Receipt Date: 20050216
  Transmission Date: 20050727
  Serious: No
  Sender: FDA-Public Use
  Company Number: 2005AP01235

PATIENT
  Age: 18 Year
  Sex: Female
  Weight: 57 kg

DRUGS (8)
  1. DIPRIVAN [Suspect]
     Indication: SEDATION
     Dosage: 3 MG/KG/HR
     Dates: start: 20030401, end: 20030401
  2. DIPRIVAN [Suspect]
     Indication: SEDATION
     Dosage: 5 MG/KG/HR
     Dates: start: 20030401, end: 20030401
  3. DIPRIVAN [Suspect]
     Indication: SEDATION
     Dosage: 5 MG/KG/HR
     Dates: start: 20030601, end: 20030601
  4. DIPRIVAN [Suspect]
     Indication: SEDATION
     Dosage: 5 MG/KG/HR
     Dates: start: 20030701, end: 20030701
  5. DIPRIVAN [Suspect]
     Indication: SEDATION
     Dosage: 3 MG/KG/HR
     Dates: start: 20030901, end: 20030901
  6. DIPRIVAN [Suspect]
     Indication: SEDATION
     Dosage: 1 MG/KG/HR
     Dates: start: 20030901, end: 20030901
  7. DIPRIVAN [Suspect]
     Indication: SEDATION
     Dosage: MG/KG/HR
     Dates: start: 20030901, end: 20030901
  8. PENTAZOCINE [Concomitant]

REACTIONS (6)
  - CONDITION AGGRAVATED [None]
  - HYPERVENTILATION [None]
  - LOSS OF CONSCIOUSNESS [None]
  - MOVEMENT DISORDER [None]
  - PHOBIA [None]
  - RESPIRATORY ARREST [None]
